FAERS Safety Report 7141749-X (Version None)
Quarter: 2010Q4

REPORT INFORMATION
  Report Type: 
  Country: None (occurrence: None)
  Receive Date: 20101207
  Receipt Date: 20101118
  Transmission Date: 20110411
  Serious: Yes (Life-Threatening, Hospitalization)
  Sender: FDA-Public Use
  Company Number: JP-AMGEN-QUU414121

PATIENT

DRUGS (26)
  1. ENBREL [Suspect]
     Indication: RHEUMATOID ARTHRITIS
     Dosage: 25 MG, 2 TIMES/WK
     Route: 058
     Dates: start: 20070209, end: 20070327
  2. ENBREL [Suspect]
     Dosage: 25 MG, QWK
     Route: 058
     Dates: start: 20070425, end: 20070905
  3. ENBREL [Suspect]
     Dosage: 25 MG, QWK
     Route: 058
     Dates: start: 20070919, end: 20071024
  4. ENBREL [Suspect]
     Dosage: 25 MG, QWK
     Route: 058
     Dates: start: 20071107, end: 20071205
  5. ENBREL [Suspect]
     Dosage: 25 MG, QWK
     Route: 058
     Dates: start: 20071227, end: 20080806
  6. ENBREL [Suspect]
     Dosage: 50 MG, QWK
     Route: 058
     Dates: start: 20080813, end: 20081001
  7. ENBREL [Suspect]
     Dosage: 50 MG, QWK
     Route: 058
     Dates: start: 20081008, end: 20100414
  8. ENBREL [Suspect]
  9. IANSOPRAZOLE [Concomitant]
     Dosage: 15 MG, QD
     Route: 048
  10. MUCOSIL-10 [Concomitant]
     Dosage: 45 MG, QD
     Route: 048
  11. ISONIAZID [Concomitant]
     Dosage: 300 MG, QD
     Route: 048
     Dates: start: 20090111
  12. PYRIDOXAL PHOSPHATE [Concomitant]
     Dosage: 30 MG, QD
     Route: 048
     Dates: start: 20090111
  13. BACTRIM [Concomitant]
     Dosage: UNK UNK, QD
     Route: 048
     Dates: start: 20090130
  14. OLMETEC [Concomitant]
     Dosage: 20 MG, QD
     Route: 048
  15. AMLODIPINE BESYLATE [Concomitant]
     Dosage: 2.5 MG, QD
     Route: 048
  16. D ALFA [Concomitant]
     Dosage: 1 A?G, QD
     Route: 048
  17. MENATETRENONE [Concomitant]
     Dosage: 45 MG, QD
     Route: 048
  18. REBAMIPIDE [Concomitant]
     Dosage: 300 MG, QD
     Route: 048
  19. MUCODYNE [Concomitant]
     Dosage: 1500 MG, QD
     Route: 048
  20. MYSLEE [Concomitant]
     Dosage: 5 MG, QD
     Route: 048
  21. ALENDRONATE SODIUM [Concomitant]
     Dosage: 35 MG, QWK
     Route: 048
  22. LOXOPROFEN SODIUM [Concomitant]
     Dosage: 180 MG, QD
     Route: 048
  23. PREDNISOLONE [Concomitant]
     Dosage: 2 MG, QD
     Route: 048
     Dates: start: 20060301
  24. CLARITHROMYCIN [Concomitant]
     Dosage: 200 MG, QD
     Route: 048
  25. CELECOXIB [Concomitant]
     Dosage: 400 MG, QD
     Route: 048
  26. SPIRONOLACTONE [Concomitant]
     Dosage: 25 MG, QD
     Route: 048

REACTIONS (1)
  - BREAST CANCER FEMALE [None]
